FAERS Safety Report 7156247-7 (Version None)
Quarter: 2010Q4

REPORT INFORMATION
  Report Type: 
  Country: None (occurrence: None)
  Receive Date: 20101214
  Receipt Date: 20101206
  Transmission Date: 20110411
  Serious: Yes (Death, Hospitalization, Other)
  Sender: FDA-Public Use
  Company Number: GB-ELI_LILLY_AND_COMPANY-GB201010007051

PATIENT
  Sex: Female
  Weight: 55.6 kg

DRUGS (5)
  1. ALIMTA [Suspect]
     Indication: ADENOCARCINOMA
     Dosage: 800 MG, UNKNOWN
     Route: 042
     Dates: start: 20101015, end: 20101015
  2. CARBOPLATIN [Concomitant]
     Dosage: UNK, UNKNOWN
     Route: 065
  3. SALBUTAMOL [Concomitant]
     Indication: CHRONIC OBSTRUCTIVE PULMONARY DISEASE
     Dosage: UNK, UNKNOWN
     Route: 065
  4. VITAMIN B-12 [Concomitant]
     Dosage: UNK, UNKNOWN
     Route: 065
  5. FOLIC ACID [Concomitant]
     Dosage: UNK, UNKNOWN
     Route: 065

REACTIONS (3)
  - INFECTIVE EXACERBATION OF CHRONIC OBSTRUCTIVE AIRWAYS DISEASE [None]
  - MALIGNANT NEOPLASM PROGRESSION [None]
  - SUPERIOR VENA CAVAL OCCLUSION [None]
